FAERS Safety Report 26112945 (Version 2)
Quarter: 2025Q4

REPORT INFORMATION
  Report Type: Spontaneous
  Country: CN (occurrence: CN)
  Receive Date: 20251202
  Receipt Date: 20251203
  Transmission Date: 20260117
  Serious: No
  Sender: SANOFI AVENTIS
  Company Number: CN-SA-2025SA357485

PATIENT
  Age: 85 Year
  Sex: Male
  Weight: 80 kg

DRUGS (5)
  1. ZOLPIDEM TARTRATE [Suspect]
     Active Substance: ZOLPIDEM TARTRATE
     Indication: Insomnia
     Dosage: 10 MG, QD
     Route: 048
     Dates: start: 20251027, end: 20251112
  2. XIN KUN [Concomitant]
     Indication: Symptomatic treatment
     Dosage: 10 MG, QD
     Route: 048
     Dates: start: 20251027, end: 20251113
  3. TUO PING [Concomitant]
     Indication: Symptomatic treatment
     Dosage: 80 MG, QD
     Route: 048
     Dates: start: 20251027, end: 20251113
  4. GLUCOBAY [Concomitant]
     Active Substance: ACARBOSE
     Indication: Symptomatic treatment
     Dosage: 50 MG, TID
     Route: 048
     Dates: start: 20251027, end: 20251113
  5. MEI DA XIN [Concomitant]
     Indication: Symptomatic treatment
     Dosage: 10 MG, QD
     Route: 048
     Dates: start: 20251027, end: 20251113

REACTIONS (3)
  - Mental disorder [Recovered/Resolved]
  - Disorganised speech [Recovered/Resolved]
  - Dysphoria [Recovered/Resolved]

NARRATIVE: CASE EVENT DATE: 20251111
